FAERS Safety Report 21372352 (Version 1)
Quarter: 2022Q3

REPORT INFORMATION
  Report Type: Report from Study
  Country: EG (occurrence: EG)
  Receive Date: 20220924
  Receipt Date: 20220924
  Transmission Date: 20221026
  Serious: Yes (Other)
  Sender: FDA-Public Use
  Company Number: EG-NOVARTISPH-NVSC2022EG198072

PATIENT
  Age: 58 Year
  Sex: Female

DRUGS (6)
  1. COSENTYX [Suspect]
     Active Substance: SECUKINUMAB
     Indication: Ankylosing spondylitis
     Dosage: 150 MG (EVERY MONTH FOR SIX MONTHS)
     Route: 058
     Dates: start: 20220820
  2. BISOPROLOL FUMARATE [Concomitant]
     Active Substance: BISOPROLOL FUMARATE
     Indication: Hypertension
     Dosage: 5 MG, QD
     Route: 065
     Dates: start: 2012
  3. EUTHYROX [Concomitant]
     Active Substance: LEVOTHYROXINE SODIUM
     Indication: Hypothyroidism
     Dosage: 0.5 DOSAGE FORM (EUTHYROX 50)
     Route: 065
     Dates: start: 2012
  4. DICLOFENAC [Concomitant]
     Active Substance: DICLOFENAC
     Indication: Pain
     Dosage: UNK, (75)
     Route: 065
  5. CORTISONE [Concomitant]
     Active Substance: CORTISONE
     Indication: Inflammation
     Dosage: UNK
     Route: 065
  6. FLEBOTON [Concomitant]
     Indication: Pain
     Dosage: UNK
     Route: 065

REACTIONS (8)
  - Pelvic inflammatory disease [Not Recovered/Not Resolved]
  - General physical condition abnormal [Unknown]
  - Myalgia [Not Recovered/Not Resolved]
  - Pain [Not Recovered/Not Resolved]
  - Back pain [Not Recovered/Not Resolved]
  - Inflammation [Not Recovered/Not Resolved]
  - Off label use [Unknown]
  - Drug ineffective [Not Recovered/Not Resolved]

NARRATIVE: CASE EVENT DATE: 20220820
